FAERS Safety Report 23619257 (Version 1)
Quarter: 2024Q1

REPORT INFORMATION
  Report Type: Other
  Country: JP (occurrence: None)
  Receive Date: 20240311
  Receipt Date: 20240311
  Transmission Date: 20240410
  Serious: Yes (Hospitalization, Other)
  Sender: FDA-Public Use
  Company Number: JP-ROCHE-3520636

PATIENT
  Age: 50 Year
  Sex: Male

DRUGS (13)
  1. MYCOPHENOLATE MOFETIL [Suspect]
     Active Substance: MYCOPHENOLATE MOFETIL
     Indication: Prophylaxis against transplant rejection
     Route: 065
  2. TACROLIMUS [Suspect]
     Active Substance: TACROLIMUS
     Indication: Prophylaxis against transplant rejection
     Route: 065
  3. PREDNISOLONE [Suspect]
     Active Substance: PREDNISOLONE
     Indication: Prophylaxis against transplant rejection
     Route: 065
  4. CARVEDILOL [Concomitant]
     Active Substance: CARVEDILOL
  5. CILNIDIPINE [Concomitant]
     Active Substance: CILNIDIPINE
  6. AZILSARTAN KAMEDOXOMIL [Concomitant]
     Active Substance: AZILSARTAN KAMEDOXOMIL
  7. NIFEDIPINE [Concomitant]
     Active Substance: NIFEDIPINE
  8. DOXAZOSIN MESYLATE [Concomitant]
     Active Substance: DOXAZOSIN MESYLATE
  9. ALFACALCIDOL [Concomitant]
     Active Substance: ALFACALCIDOL
  10. SODIUM BICARBONATE [Concomitant]
     Active Substance: SODIUM BICARBONATE
  11. RABEPRAZOLE [Concomitant]
     Active Substance: RABEPRAZOLE
  12. FEBUXOSTAT [Concomitant]
     Active Substance: FEBUXOSTAT
  13. METHYLPREDNISOLONE [Concomitant]
     Active Substance: METHYLPREDNISOLONE

REACTIONS (5)
  - COVID-19 pneumonia [Recovering/Resolving]
  - Pneumocystis jirovecii pneumonia [Recovering/Resolving]
  - Pneumonia bacterial [Recovering/Resolving]
  - Atypical pneumonia [Recovering/Resolving]
  - Respiratory failure [Unknown]
